FAERS Safety Report 5406247-X (Version None)
Quarter: 2007Q3

REPORT INFORMATION
  Report Type: 
  Country: None (occurrence: None)
  Receive Date: 20070802
  Receipt Date: 20070802
  Transmission Date: 20080115
  Serious: Yes (Other)
  Sender: FDA-Public Use
  Company Number: None

PATIENT
  Age: 77 Year
  Sex: Male
  Weight: 79.3795 kg

DRUGS (1)
  1. VIGAMOX [Suspect]
     Indication: CATARACT OPERATION
     Dosage: ONE DROP 4 TIMES DAILY INTRAOCULAR
     Route: 031
     Dates: start: 20070724, end: 20070730

REACTIONS (1)
  - TENDONITIS [None]
